FAERS Safety Report 6263921-3 (Version None)
Quarter: 2009Q3

REPORT INFORMATION
  Report Type: 
  Country: None (occurrence: None)
  Receive Date: 20090710
  Receipt Date: 20090701
  Transmission Date: 20100115
  Serious: Yes (Hospitalization)
  Sender: FDA-Public Use
  Company Number: CH-BAYER-200924478GPV

PATIENT
  Age: 74 Year
  Sex: Female

DRUGS (4)
  1. ASPIRIN [Suspect]
     Indication: DRUG USE FOR UNKNOWN INDICATION
     Dosage: TOTAL DAILY DOSE: 100 MG  UNIT DOSE: 100 MG
     Route: 048
     Dates: end: 20081209
  2. CLOPIDOGREL [Suspect]
     Indication: DRUG USE FOR UNKNOWN INDICATION
     Dosage: TOTAL DAILY DOSE: 75 MG  UNIT DOSE: 75 MG
     Route: 048
     Dates: end: 20081209
  3. LEVOTHYROXINE SODIUM [Concomitant]
     Route: 048
  4. METOPROLOL TARTRATE [Concomitant]

REACTIONS (5)
  - ANAEMIA [None]
  - ASTHENIA [None]
  - DYSPNOEA [None]
  - FAECES DISCOLOURED [None]
  - GASTROINTESTINAL HAEMORRHAGE [None]
